FAERS Safety Report 7577633-7 (Version None)
Quarter: 2011Q2

REPORT INFORMATION
  Report Type: 
  Country: None (occurrence: None)
  Receive Date: 20110628
  Receipt Date: 20110426
  Transmission Date: 20111010
  Serious: Yes (Disabling, Other)
  Sender: FDA-Public Use
  Company Number: US-ASTRAZENECA-2011SE21950

PATIENT
  Age: 27 Year
  Sex: Male

DRUGS (1)
  1. TOPROL-XL [Suspect]
     Dosage: GENERIC
     Route: 048

REACTIONS (3)
  - DISABILITY [None]
  - ARM AMPUTATION [None]
  - ROAD TRAFFIC ACCIDENT [None]
